FAERS Safety Report 25128111 (Version 1)
Quarter: 2025Q1

REPORT INFORMATION
  Report Type: Spontaneous
  Country: BR (occurrence: BR)
  Receive Date: 20250327
  Receipt Date: 20250327
  Transmission Date: 20250408
  Serious: Yes (Hospitalization, Other)
  Sender: BOEHRINGER INGELHEIM
  Company Number: BR-BoehringerIngelheim-2025-BI-016530

PATIENT
  Age: 13 Year
  Sex: Male
  Weight: 42 kg

DRUGS (13)
  1. JARDIANCE [Suspect]
     Active Substance: EMPAGLIFLOZIN
     Indication: Product used for unknown indication
     Dosage: 10 TABLETS
     Dates: start: 20250319, end: 20250319
  2. PASSIFLORA INCARNATA [Suspect]
     Active Substance: HERBALS\HOMEOPATHICS\PASSIFLORA INCARNATA FLOWERING TOP
     Indication: Product used for unknown indication
     Dosage: 1 BLISTER
     Dates: start: 20250319, end: 20250319
  3. LITHIUM CARBONATE [Suspect]
     Active Substance: LITHIUM CARBONATE
     Indication: Product used for unknown indication
     Dosage: 10 TO 15 TABLETS
     Dates: start: 20250319, end: 20250319
  4. DESVENLAFAXINE [Suspect]
     Active Substance: DESVENLAFAXINE
     Indication: Product used for unknown indication
     Dosage: 3 BLISTERS
     Dates: start: 20250319, end: 20250319
  5. RIVOTRIL [Suspect]
     Active Substance: CLONAZEPAM
     Indication: Product used for unknown indication
     Dosage: 10 TABLETS
     Dates: start: 20250319, end: 20250319
  6. DULOXETINE [Suspect]
     Active Substance: DULOXETINE
     Indication: Product used for unknown indication
     Dosage: 15 TABLETS
     Dates: start: 20250319, end: 20250319
  7. ACETAMINOPHEN\CODEINE PHOSPHATE [Suspect]
     Active Substance: ACETAMINOPHEN\CODEINE PHOSPHATE
     Indication: Product used for unknown indication
     Dosage: 3 TABLETS
     Dates: start: 20250319, end: 20250319
  8. ONDANSETRON [Suspect]
     Active Substance: ONDANSETRON
     Indication: Product used for unknown indication
     Dosage: 1 TABLET
  9. LOSARTAN [Suspect]
     Active Substance: LOSARTAN
     Indication: Product used for unknown indication
     Dosage: 1 BLISTER
     Dates: start: 20250318, end: 20250318
  10. SERTRALINE [Concomitant]
     Active Substance: SERTRALINE HYDROCHLORIDE
     Indication: Oppositional defiant disorder
  11. SERTRALINE [Concomitant]
     Active Substance: SERTRALINE HYDROCHLORIDE
     Indication: Anxiety
  12. LISDEXAMFETAMINE DIMESYLATE [Concomitant]
     Active Substance: LISDEXAMFETAMINE DIMESYLATE
     Indication: Oppositional defiant disorder
  13. LISDEXAMFETAMINE DIMESYLATE [Concomitant]
     Active Substance: LISDEXAMFETAMINE DIMESYLATE
     Indication: Anxiety

REACTIONS (8)
  - Suicide attempt [Unknown]
  - Overdose [Unknown]
  - Somnolence [Unknown]
  - Pallor [Unknown]
  - Vomiting [Recovered/Resolved]
  - Somnolence [Unknown]
  - Abdominal pain [Unknown]
  - Tachycardia [Unknown]

NARRATIVE: CASE EVENT DATE: 20250319
